FAERS Safety Report 18884682 (Version 2)
Quarter: 2021Q1

REPORT INFORMATION
  Report Type: Report from Study
  Country: DO (occurrence: DO)
  Receive Date: 20210211
  Receipt Date: 20210223
  Transmission Date: 20210420
  Serious: Yes (Other)
  Sender: FDA-Public Use
  Company Number: DO-ASTRAZENECA-2021A038523

PATIENT
  Age: 45 Year
  Sex: Female

DRUGS (2)
  1. NOVALDEX [Suspect]
     Active Substance: TAMOXIFEN
     Indication: BREAST CANCER FEMALE
     Route: 048
     Dates: start: 2019
  2. FASLODEX [Suspect]
     Active Substance: FULVESTRANT
     Indication: BREAST CANCER FEMALE
     Dosage: EVERY FOUR WEEKS
     Route: 030
     Dates: start: 2019

REACTIONS (5)
  - Inflammation [Recovering/Resolving]
  - Amenorrhoea [Not Recovered/Not Resolved]
  - Blindness [Not Recovered/Not Resolved]
  - Decreased appetite [Recovering/Resolving]
  - Fatigue [Recovering/Resolving]

NARRATIVE: CASE EVENT DATE: 2019
